FAERS Safety Report 14728820 (Version 1)
Quarter: 2018Q2

REPORT INFORMATION
  Report Type: Spontaneous
  Country: US (occurrence: US)
  Receive Date: 20180402
  Receipt Date: 20180402
  Transmission Date: 20180711
  Serious: Yes (Other)
  Sender: FDA-Public Use
  Company Number: None

PATIENT
  Sex: Female
  Weight: 59.85 kg

DRUGS (1)
  1. TRETIN-X [Suspect]
     Active Substance: TRETINOIN
     Indication: SKIN STRIAE
     Route: 061
     Dates: start: 20130501

REACTIONS (2)
  - Skin discolouration [None]
  - Rash generalised [None]
